FAERS Safety Report 25774075 (Version 3)
Quarter: 2025Q3

REPORT INFORMATION
  Report Type: Report from Study
  Country: US (occurrence: US)
  Receive Date: 20250908
  Receipt Date: 20250924
  Transmission Date: 20251020
  Serious: Yes (Other)
  Sender: NOVARTIS
  Company Number: US-002147023-NVSC2025US109352

PATIENT
  Age: 67 Year
  Sex: Female
  Weight: 63.23 kg

DRUGS (5)
  1. TASIGNA [Suspect]
     Active Substance: NILOTINIB
     Indication: Philadelphia positive chronic myeloid leukaemia
     Dosage: 400 MG, QD
     Route: 048
     Dates: start: 20180404
  2. TASIGNA [Suspect]
     Active Substance: NILOTINIB
     Dosage: 150 MG, BID
     Route: 048
     Dates: start: 20180611, end: 202506
  3. TASIGNA [Suspect]
     Active Substance: NILOTINIB
     Dosage: 150 MG, QD
     Route: 048
     Dates: start: 202203
  4. TASIGNA [Suspect]
     Active Substance: NILOTINIB
     Dosage: 150 MG, BID
     Route: 048
     Dates: start: 20250824
  5. SCEMBLIX [Suspect]
     Active Substance: ASCIMINIB HYDROCHLORIDE
     Indication: Chronic myeloid leukaemia
     Dosage: 2 DOSAGE FORM, QD
     Route: 048
     Dates: start: 20250820, end: 20250823

REACTIONS (23)
  - Philadelphia positive chronic myeloid leukaemia [Unknown]
  - Malignant neoplasm progression [Unknown]
  - Myocardial infarction [Unknown]
  - Diverticulitis [Recovered/Resolved]
  - Hypersensitivity [Recovered/Resolved]
  - Chest discomfort [Unknown]
  - Dyspnoea [Unknown]
  - Neuropathy peripheral [Recovering/Resolving]
  - Headache [Unknown]
  - Swollen tongue [Unknown]
  - Lip swelling [Unknown]
  - Swelling of eyelid [Unknown]
  - Oesophagitis [Unknown]
  - Cardiac disorder [Unknown]
  - Gastrointestinal disorder [Unknown]
  - White blood cell count increased [Unknown]
  - Adverse drug reaction [Unknown]
  - Hypotension [Unknown]
  - Swelling face [Unknown]
  - Pain in extremity [Unknown]
  - Nausea [Recovered/Resolved]
  - Vomiting [Recovered/Resolved]
  - Diarrhoea [Recovered/Resolved]

NARRATIVE: CASE EVENT DATE: 20250820
